FAERS Safety Report 15690750 (Version 30)
Quarter: 2022Q2

REPORT INFORMATION
  Report Type: Spontaneous
  Country: US (occurrence: US)
  Receive Date: 20181205
  Receipt Date: 20220617
  Transmission Date: 20220721
  Serious: Yes (Other)
  Sender: FDA-Public Use
  Company Number: US-PFIZER INC-2018500036

PATIENT
  Age: 72 Year
  Sex: Female
  Weight: 68 kg

DRUGS (6)
  1. IBRANCE [Suspect]
     Active Substance: PALBOCICLIB
     Indication: Breast cancer metastatic
     Dosage: 100 MG, DAILY
     Route: 048
     Dates: start: 201810, end: 2018
  2. IBRANCE [Suspect]
     Active Substance: PALBOCICLIB
     Dosage: 125 MG, UNK
     Dates: start: 20181112, end: 201811
  3. IBRANCE [Suspect]
     Active Substance: PALBOCICLIB
     Dosage: 100 MG, UNK
     Dates: start: 201811, end: 201811
  4. IBRANCE [Suspect]
     Active Substance: PALBOCICLIB
     Dosage: 75 MG
  5. AFINITOR [Concomitant]
     Active Substance: EVEROLIMUS
  6. FULVESTRANT [Concomitant]
     Active Substance: FULVESTRANT

REACTIONS (29)
  - Exposure to SARS-CoV-2 [Unknown]
  - White blood cell count decreased [Recovering/Resolving]
  - Platelet count decreased [Recovering/Resolving]
  - Full blood count abnormal [Recovering/Resolving]
  - Back pain [Unknown]
  - Fatigue [Recovering/Resolving]
  - Memory impairment [Unknown]
  - Asthenia [Recovering/Resolving]
  - Lacrimation increased [Unknown]
  - Eye allergy [Unknown]
  - Neutrophil count decreased [Unknown]
  - Alopecia [Unknown]
  - Pain [Not Recovered/Not Resolved]
  - Myalgia [Unknown]
  - Joint stiffness [Unknown]
  - Musculoskeletal stiffness [Unknown]
  - Dyspepsia [Unknown]
  - Neoplasm progression [Unknown]
  - Lymphadenitis [Unknown]
  - Dizziness postural [Unknown]
  - Panic attack [Unknown]
  - Discomfort [Unknown]
  - Paraesthesia [Unknown]
  - Disorientation [Unknown]
  - Feeling abnormal [Unknown]
  - Weight decreased [Unknown]
  - Nasal congestion [Unknown]
  - COVID-19 [Recovered/Resolved]
  - Lymphadenitis [Unknown]

NARRATIVE: CASE EVENT DATE: 20220408
